FAERS Safety Report 19592979 (Version 1)
Quarter: 2021Q3

REPORT INFORMATION
  Report Type: Spontaneous
  Country: US (occurrence: US)
  Receive Date: 20210722
  Receipt Date: 20210722
  Transmission Date: 20211014
  Serious: No
  Sender: FDA-Public Use
  Company Number: None

PATIENT
  Age: 28 Year
  Sex: Female
  Weight: 57.15 kg

DRUGS (2)
  1. RISPERIDONE. [Suspect]
     Active Substance: RISPERIDONE
     Indication: SCHIZOAFFECTIVE DISORDER
     Route: 048
     Dates: start: 20210717
  2. DIVALPROEX 500MG [Concomitant]
     Active Substance: DIVALPROEX SODIUM
     Dates: start: 20210717

REACTIONS (1)
  - Photopsia [None]

NARRATIVE: CASE EVENT DATE: 20210719
